FAERS Safety Report 24195670 (Version 1)
Quarter: 2024Q3

REPORT INFORMATION
  Report Type: Spontaneous
  Country: CA (occurrence: CA)
  Receive Date: 20240809
  Receipt Date: 20240809
  Transmission Date: 20241017
  Serious: Yes (Life-Threatening, Hospitalization, Other)
  Sender: TEVA
  Company Number: CA-TEVA-VS-3227764

PATIENT
  Age: 12 Year
  Sex: Male

DRUGS (2)
  1. CISPLATIN [Suspect]
     Active Substance: CISPLATIN
     Indication: Osteosarcoma
     Dosage: DESCRIPTION: CISPLATIN INJECTION, BP SINGLE DOSE VIALS. 10MG/10ML AND 50MG/50ML.PRESERVATIVE-FREE...
     Route: 042
  2. DOXORUBICIN [Suspect]
     Active Substance: DOXORUBICIN
     Indication: Osteosarcoma
     Dosage: DESCRIPTION: DOXORUBICIN INJECTION, BP, DOSE FORM: SOLUTION INTRAVENOUS
     Route: 042

REACTIONS (3)
  - Pyrexia [Recovered/Resolved]
  - Neutropenia [Recovered/Resolved]
  - Nausea [Recovered/Resolved]
